FAERS Safety Report 7055642-4 (Version None)
Quarter: 2010Q4

REPORT INFORMATION
  Report Type: 
  Country: None (occurrence: None)
  Receive Date: 20101021
  Receipt Date: 20101014
  Transmission Date: 20110411
  Serious: Yes (Other)
  Sender: FDA-Public Use
  Company Number: US-BRISTOL-MYERS SQUIBB COMPANY-15333743

PATIENT
  Age: 68 Year
  Sex: Male

DRUGS (8)
  1. ONGLYZA [Suspect]
     Indication: DIABETES MELLITUS
     Route: 048
     Dates: start: 20100812, end: 20101013
  2. METFORMIN [Concomitant]
     Route: 048
  3. AMARYL [Concomitant]
     Route: 048
  4. PRECOSE [Concomitant]
     Route: 048
  5. AVANDIA [Concomitant]
     Route: 048
     Dates: end: 20100812
  6. FUROSEMIDE [Concomitant]
     Dosage: ON WEEKENDS
     Route: 048
  7. VITAMIN B-12 [Concomitant]
     Dosage: INJECTION
  8. POTASSIUM CHLORIDE [Concomitant]
     Route: 048

REACTIONS (2)
  - CHOLELITHIASIS [None]
  - JAUNDICE [None]
